FAERS Safety Report 7285847-9 (Version None)
Quarter: 2011Q1

REPORT INFORMATION
  Report Type: 
  Country: None (occurrence: None)
  Receive Date: 20110210
  Receipt Date: 20110203
  Transmission Date: 20110831
  Serious: Yes (Other)
  Sender: FDA-Public Use
  Company Number: JP-BRISTOL-MYERS SQUIBB COMPANY-15528730

PATIENT
  Age: 74 Year
  Sex: Male

DRUGS (1)
  1. HYDREA [Suspect]

REACTIONS (1)
  - INTERSTITIAL LUNG DISEASE [None]
